FAERS Safety Report 18563173 (Version 2)
Quarter: 2020Q4

REPORT INFORMATION
  Report Type: Other
  Country: JP (occurrence: JP)
  Receive Date: 20201201
  Receipt Date: 20201204
  Transmission Date: 20210114
  Serious: Yes (Other)
  Sender: FDA-Public Use
  Company Number: JP-ROCHE-2723731

PATIENT
  Age: 69 Year
  Sex: Male

DRUGS (4)
  1. AVASTIN [Suspect]
     Active Substance: BEVACIZUMAB
     Indication: SARCOMATOID CARCINOMA OF THE LUNG
     Dosage: DOSAGE IS UNCERTAIN.
     Route: 041
  2. CARBOPLATIN. [Concomitant]
     Active Substance: CARBOPLATIN
     Indication: SARCOMATOID CARCINOMA OF THE LUNG
     Dosage: DOSAGE IS UNCERTAIN.
     Route: 041
  3. PACLITAXEL. [Concomitant]
     Active Substance: PACLITAXEL
     Indication: SARCOMATOID CARCINOMA OF THE LUNG
     Dosage: DOSAGE IS UNCERTAIN.
     Route: 041
  4. TECENTRIQ [Suspect]
     Active Substance: ATEZOLIZUMAB
     Indication: SARCOMATOID CARCINOMA OF THE LUNG
     Dosage: DOSAGE IS UNCERTAIN.
     Route: 041

REACTIONS (2)
  - Cardiac failure congestive [Recovering/Resolving]
  - Myocarditis [Recovering/Resolving]
